FAERS Safety Report 7208429-3 (Version None)
Quarter: 2010Q4

REPORT INFORMATION
  Report Type: 
  Country: None (occurrence: None)
  Receive Date: 20101230
  Receipt Date: 20101230
  Transmission Date: 20110411
  Serious: Yes (Hospitalization, Disabling)
  Sender: FDA-Public Use
  Company Number: None

PATIENT
  Sex: Female
  Weight: 161.0269 kg

DRUGS (1)
  1. PROPOXYPHENE HCL AND ACETAMINOPHEN [Suspect]
     Indication: PAIN
     Dosage: 100-650 MG TEV TABLET EVERY 6 HOURS
     Dates: start: 20081001, end: 20101129

REACTIONS (6)
  - BLOOD PRESSURE FLUCTUATION [None]
  - CHEST PAIN [None]
  - DIZZINESS [None]
  - PALPITATIONS [None]
  - RENAL DISORDER [None]
  - SYNCOPE [None]
